FAERS Safety Report 4667077-X (Version None)
Quarter: 2005Q2

REPORT INFORMATION
  Report Type: 
  Country: None (occurrence: None)
  Receive Date: 20050520
  Receipt Date: 20050207
  Transmission Date: 20051028
  Serious: Yes (Other)
  Sender: FDA-Public Use
  Company Number: PHBS2005BE02118

PATIENT
  Age: 53 Year
  Sex: Female

DRUGS (12)
  1. ZOMETA [Suspect]
     Indication: METASTASES TO BONE
     Dosage: UNK, UNK
     Route: 042
     Dates: start: 20021201, end: 20040908
  2. EPIRUBICIN [Concomitant]
     Dosage: UNK, UNK
     Route: 065
     Dates: start: 20021201, end: 20030701
  3. TAXOTERE [Concomitant]
     Route: 065
     Dates: start: 20021201, end: 20030701
  4. TAXOTERE [Concomitant]
     Dosage: UNK, TIW
     Route: 065
     Dates: start: 20040601
  5. XELODA [Concomitant]
     Route: 065
     Dates: start: 20030701
  6. SOLU-MEDROL [Concomitant]
     Dosage: 125 MG/D
     Route: 065
     Dates: start: 20040601
  7. DEXA [Concomitant]
     Dosage: 16 MG, Q72H
     Route: 065
     Dates: start: 20040601
  8. PAMIDRONATE DISODIUM [Suspect]
     Dosage: PAMIDRONATE FAULDING 60 MG
     Dates: start: 20040903, end: 20040903
  9. PAMIDRONATE DISODIUM [Suspect]
     Dosage: PAMIDRONATE MAYNE 60 MG
     Dates: start: 20041004, end: 20041004
  10. PAMIDRONATE DISODIUM [Suspect]
     Dosage: PAMIDRONATE MAYNE 60 MG
     Dates: start: 20041025, end: 20041025
  11. PAMIDRONATE DISODIUM [Suspect]
     Dosage: PAMIDRONATE MAYNE 60 MG
     Dates: start: 20041122, end: 20041122
  12. PAMIDRONATE DISODIUM [Suspect]
     Dosage: MONTHLY PAMIDRONATE MAYNE

REACTIONS (7)
  - BONE INFECTION [None]
  - FISTULA [None]
  - FISTULA REPAIR [None]
  - INFLAMMATION [None]
  - OSTEITIS [None]
  - OSTEONECROSIS [None]
  - WOUND DEBRIDEMENT [None]
